FAERS Safety Report 5085581-X (Version None)
Quarter: 2006Q3

REPORT INFORMATION
  Report Type: 
  Country: None (occurrence: None)
  Receive Date: 20060822
  Receipt Date: 20060817
  Transmission Date: 20061208
  Serious: Yes (Life-Threatening)
  Sender: FDA-Public Use
  Company Number: BR-GLAXOSMITHKLINE-A0617323A

PATIENT
  Age: 35 Year
  Sex: Female

DRUGS (4)
  1. WELLBUTRIN [Suspect]
     Indication: SUICIDE ATTEMPT
  2. CITALOPRAM [Suspect]
     Indication: SUICIDE ATTEMPT
  3. SIBUTRAMINE [Suspect]
     Indication: SUICIDE ATTEMPT
  4. MELATONIN [Suspect]
     Indication: SUICIDE ATTEMPT

REACTIONS (6)
  - CONVULSION [None]
  - COORDINATION ABNORMAL [None]
  - INTENTIONAL OVERDOSE [None]
  - SUICIDE ATTEMPT [None]
  - TACHYCARDIA [None]
  - TREMOR [None]
